FAERS Safety Report 7791727-2 (Version None)
Quarter: 2011Q3

REPORT INFORMATION
  Report Type: 
  Country: None (occurrence: None)
  Receive Date: 20110929
  Receipt Date: 20110927
  Transmission Date: 20111222
  Serious: Yes (Other)
  Sender: FDA-Public Use
  Company Number: 1000023351

PATIENT
  Age: 36 Year
  Sex: Female
  Weight: 70.31 kg

DRUGS (3)
  1. ALCOHOL (ETHANOL) [Suspect]
     Dosage: ORAL
     Route: 048
  2. VIIBRYD [Suspect]
     Indication: DEPRESSION
     Dosage: 10 MG (10 MG,L IN 1 D),ORAL
     Route: 048
     Dates: start: 20110825, end: 20110831
  3. VIIBRYD [Suspect]
     Indication: DEPRESSION
     Dosage: 20 MG (20 MG, 1 IN 1 D),ORAL
     Route: 048
     Dates: start: 20110901, end: 20110901

REACTIONS (1)
  - LOSS OF CONSCIOUSNESS [None]
